FAERS Safety Report 8111421-8 (Version None)
Quarter: 2012Q1

REPORT INFORMATION
  Report Type: 
  Country: None (occurrence: None)
  Receive Date: 20120203
  Receipt Date: 20111128
  Transmission Date: 20120608
  Serious: No
  Sender: FDA-Public Use
  Company Number: US-GLAXOSMITHKLINE-A0955269A

PATIENT
  Age: 43 Year
  Sex: Female

DRUGS (3)
  1. CLONAZEPAM [Concomitant]
  2. LAMICTAL [Suspect]
     Indication: BIPOLAR DISORDER
     Dosage: 50MG PER DAY
     Route: 048
     Dates: start: 20111026
  3. TRILEPTAL [Concomitant]

REACTIONS (1)
  - MENSTRUATION IRREGULAR [None]
